FAERS Safety Report 8632043 (Version 2)
Quarter: 2013Q1

REPORT INFORMATION
  Report Type: Spontaneous
  Country: FR (occurrence: FR)
  Receive Date: 20120625
  Receipt Date: 20130319
  Transmission Date: 20140127
  Serious: Yes (Hospitalization, Other)
  Sender: FDA-Public Use
  Company Number: PHHY2012FR051775

PATIENT
  Age: 47 Year
  Sex: Female

DRUGS (7)
  1. LEPONEX [Suspect]
     Indication: SCHIZOPHRENIA, PARANOID TYPE
     Dosage: 50 MG/DAY
     Route: 048
     Dates: end: 20120418
  2. LEPONEX [Suspect]
     Dosage: 25 MG/DAY
     Dates: start: 20120505, end: 20120506
  3. LEPONEX [Suspect]
     Dosage: 75 MG/DAY
  4. ABILIFY [Suspect]
     Route: 048
     Dates: start: 20120419, end: 20120504
  5. XANAX [Concomitant]
     Dosage: 0.75
  6. TERCIAN [Concomitant]
     Dosage: 37.5 MG, QD
  7. LEVOTHYROX [Concomitant]
     Dosage: 100 UG/DAY

REACTIONS (18)
  - General physical health deterioration [Unknown]
  - Dilatation ventricular [Unknown]
  - Ventricular dyskinesia [Unknown]
  - Weight decreased [Unknown]
  - Decreased appetite [Recovered/Resolved]
  - Pulmonary embolism [Recovered/Resolved]
  - Deep vein thrombosis [Unknown]
  - PCO2 abnormal [Unknown]
  - PO2 abnormal [Unknown]
  - Haemodynamic instability [Unknown]
  - Oxygen saturation decreased [Unknown]
  - Electrocardiogram T wave abnormal [Unknown]
  - Sinus tachycardia [Unknown]
  - Shock [Unknown]
  - Dyskinesia [Unknown]
  - Embolism venous [Recovered/Resolved]
  - Blood lactic acid increased [Unknown]
  - Blood bicarbonate increased [Unknown]
